FAERS Safety Report 25706931 (Version 1)
Quarter: 2025Q3

REPORT INFORMATION
  Report Type: Spontaneous
  Country: US (occurrence: US)
  Receive Date: 20250820
  Receipt Date: 20250820
  Transmission Date: 20251020
  Serious: No
  Sender: SANOFI AVENTIS
  Company Number: US-SA-2025SA247834

PATIENT
  Sex: Male

DRUGS (11)
  1. DUPIXENT [Suspect]
     Active Substance: DUPILUMAB
     Indication: Asthma
     Dosage: 300 MG, QOW
     Route: 058
  2. GABAPENTIN [Concomitant]
     Active Substance: GABAPENTIN
  3. LOSARTAN [Concomitant]
     Active Substance: LOSARTAN
  4. MONTELUKAST [Concomitant]
     Active Substance: MONTELUKAST
  5. SILDENAFIL [Concomitant]
     Active Substance: SILDENAFIL
  6. ALBUTEROL [Concomitant]
     Active Substance: ALBUTEROL
  7. FLUTICASONE [Concomitant]
     Active Substance: FLUTICASONE
  8. SPIRIVA [Concomitant]
     Active Substance: TIOTROPIUM BROMIDE MONOHYDRATE
  9. AMLODIPINE [Concomitant]
     Active Substance: AMLODIPINE BESYLATE
  10. METOPROLOL [Concomitant]
     Active Substance: METOPROLOL
  11. BIKTARVY [Concomitant]
     Active Substance: BICTEGRAVIR SODIUM\EMTRICITABINE\TENOFOVIR ALAFENAMIDE FUMARATE

REACTIONS (1)
  - Anosmia [Not Recovered/Not Resolved]
